FAERS Safety Report 5250995-1 (Version None)
Quarter: 2007Q1

REPORT INFORMATION
  Report Type: 
  Country: None (occurrence: None)
  Receive Date: 20070228
  Receipt Date: 20061201
  Transmission Date: 20070707
  Serious: No
  Sender: FDA-Public Use
  Company Number: US-GLAXOSMITHKLINE-A0615640A

PATIENT
  Age: 39 Year
  Sex: Male

DRUGS (5)
  1. LAMICTAL [Suspect]
     Indication: BIPOLAR DISORDER
     Dosage: 25MG SEE DOSAGE TEXT
     Route: 048
     Dates: start: 20040603
  2. XANAX [Concomitant]
  3. VALIUM [Concomitant]
  4. LITHIUM CARBONATE [Concomitant]
  5. TRAZODONE HCL [Concomitant]

REACTIONS (5)
  - ALCOHOLISM [None]
  - INJURY [None]
  - JUDGEMENT IMPAIRED [None]
  - NONSPECIFIC REACTION [None]
  - ROAD TRAFFIC ACCIDENT [None]
